FAERS Safety Report 12352234 (Version 2)
Quarter: 2016Q2

REPORT INFORMATION
  Report Type: Spontaneous
  Country: MX (occurrence: MX)
  Receive Date: 20160510
  Receipt Date: 20160608
  Transmission Date: 20160815
  Serious: Yes (Disabling)
  Sender: FDA-Public Use
  Company Number: PHHY2016MX064276

PATIENT
  Sex: Female

DRUGS (5)
  1. BRAXAN//AMIODARONE HYDROCHLORIDE [Concomitant]
     Active Substance: AMIODARONE HYDROCHLORIDE
     Indication: CARDIAC DISORDER
     Route: 065
  2. ASPIRIN FORTE [Concomitant]
     Indication: CARDIAC DISORDER
     Route: 065
  3. ONBREZ BREEZHALER [Suspect]
     Active Substance: INDACATEROL
     Indication: BRONCHITIS CHRONIC
     Dosage: 1 DF, QD
     Route: 065
     Dates: start: 20160130, end: 201605
  4. BIO ELECTRO [Concomitant]
     Indication: MIGRAINE
     Route: 065
  5. ONBREZ BREEZHALER [Suspect]
     Active Substance: INDACATEROL
     Indication: BRONCHIAL DISORDER

REACTIONS (3)
  - Pain [Not Recovered/Not Resolved]
  - Muscle rigidity [Not Recovered/Not Resolved]
  - Mobility decreased [Recovered/Resolved]
